FAERS Safety Report 4747570-1 (Version None)
Quarter: 2005Q3

REPORT INFORMATION
  Report Type: 
  Country: None (occurrence: None)
  Receive Date: 20050818
  Receipt Date: 20040915
  Transmission Date: 20060218
  Serious: No
  Sender: FDA-Public Use
  Company Number: US-BRISTOL-MYERS SQUIBB COMPANY-12701728

PATIENT
  Age: 19 Year
  Sex: Female

DRUGS (1)
  1. TEQUIN [Suspect]
     Indication: URINARY TRACT INFECTION
     Dosage: RECEIVED 1/2 OF THE TOTAL PRESCRIBED DOSE
     Route: 042
     Dates: start: 20040914, end: 20040914

REACTIONS (1)
  - HYPERSENSITIVITY [None]
